FAERS Safety Report 8382460-7 (Version None)
Quarter: 2012Q2

REPORT INFORMATION
  Report Type: 
  Country: None (occurrence: None)
  Receive Date: 20120524
  Receipt Date: 20120521
  Transmission Date: 20120825
  Serious: Yes (Other)
  Sender: FDA-Public Use
  Company Number: PHEH2012US010591

PATIENT
  Sex: Male

DRUGS (3)
  1. DIOVAN [Suspect]
  2. TEKTURNA [Suspect]
  3. VALTURNA [Suspect]

REACTIONS (1)
  - MYOCARDIAL INFARCTION [None]
